FAERS Safety Report 8929238 (Version 1)
Quarter: 2012Q4

REPORT INFORMATION
  Report Type: Spontaneous
  Country: US (occurrence: None)
  Receive Date: 20121126
  Receipt Date: 20121126
  Transmission Date: 20130627
  Serious: No
  Sender: FDA-Public Use
  Company Number: None

PATIENT
  Age: 58 Year
  Sex: Female
  Weight: 53.52 kg

DRUGS (1)
  1. MOVIPREP SOL 1055 (PEG-3350) [Suspect]
     Indication: COLONOSCOPY
     Dosage: single use dose 1 time drink
     Route: 048
     Dates: start: 20121011

REACTIONS (5)
  - Vomiting [None]
  - Nausea [None]
  - Abdominal distension [None]
  - Headache [None]
  - Dehydration [None]
